FAERS Safety Report 25355121 (Version 3)
Quarter: 2025Q2

REPORT INFORMATION
  Report Type: Report from Study
  Country: CA (occurrence: CA)
  Receive Date: 20250524
  Receipt Date: 20250615
  Transmission Date: 20250716
  Serious: Yes (Death, Other)
  Sender: ABBVIE
  Company Number: CA-ABBVIE-6281325

PATIENT
  Age: 79 Year
  Sex: Female

DRUGS (18)
  1. VENETOCLAX [Suspect]
     Active Substance: VENETOCLAX
     Indication: Acute myeloid leukaemia
     Dosage: OUT PATIENT, DOSE INCREASE
     Route: 048
     Dates: start: 20231114, end: 20231114
  2. VENETOCLAX [Suspect]
     Active Substance: VENETOCLAX
     Indication: Acute myeloid leukaemia
     Dosage: OUT PATIENT, DOSE INCREASE
     Route: 048
     Dates: start: 20231115, end: 20231115
  3. VENETOCLAX [Suspect]
     Active Substance: VENETOCLAX
     Indication: Acute myeloid leukaemia
     Dosage: OUT PATIENT, DOSE INCREASE
     Route: 048
     Dates: start: 20231116, end: 20231116
  4. VENETOCLAX [Suspect]
     Active Substance: VENETOCLAX
     Indication: Acute myeloid leukaemia
     Dosage: OUT PATIENT, END OF CYCLE
     Route: 048
     Dates: start: 20231117, end: 20231211
  5. VENETOCLAX [Suspect]
     Active Substance: VENETOCLAX
     Indication: Acute myeloid leukaemia
     Dosage: OUT PATIENT, REASON FOR ENDING -ADVERSE EVENT
     Route: 048
     Dates: start: 20231213, end: 20231228
  6. VENETOCLAX [Suspect]
     Active Substance: VENETOCLAX
     Indication: Acute myeloid leukaemia
     Route: 048
     Dates: start: 20240112
  7. COVID-19 vaccine mRNA [Concomitant]
     Indication: COVID-19 prophylaxis
  8. COVID-19 vaccine mRNA [Concomitant]
     Indication: COVID-19 prophylaxis
  9. AZACITIDINE [Suspect]
     Active Substance: AZACITIDINE
     Indication: Acute myeloid leukaemia
     Dosage: OUT PATIENT, END OF CYCLE
     Route: 065
     Dates: start: 20231114, end: 20231120
  10. AZACITIDINE [Suspect]
     Active Substance: AZACITIDINE
     Indication: Acute myeloid leukaemia
     Dosage: OUT PATIENT, END OF CYCLE
     Route: 065
     Dates: start: 20231214, end: 20231220
  11. LASIX [Concomitant]
     Active Substance: FUROSEMIDE
     Indication: Oedema
     Route: 042
     Dates: start: 20231229, end: 20240108
  12. LASIX [Concomitant]
     Active Substance: FUROSEMIDE
     Indication: Oedema
     Route: 042
     Dates: start: 20240117, end: 20240130
  13. PIPERACILLIN AND TAZOBACTAM [Concomitant]
     Active Substance: PIPERACILLIN SODIUM\TAZOBACTAM SODIUM
     Indication: Febrile neutropenia
     Route: 042
     Dates: start: 20231229, end: 20240108
  14. DOXYCYCLINE [Concomitant]
     Active Substance: DOXYCYCLINE
     Indication: Febrile neutropenia
     Route: 048
     Dates: start: 20231230, end: 20240103
  15. VANCOMYCIN [Concomitant]
     Active Substance: VANCOMYCIN
     Indication: Febrile neutropenia
     Route: 042
     Dates: start: 20231229, end: 20231231
  16. ALLOPURINOL [Concomitant]
     Active Substance: ALLOPURINOL
     Indication: Prophylaxis
     Route: 048
     Dates: start: 20231107, end: 20231121
  17. ACETAMINOPHEN [Concomitant]
     Active Substance: ACETAMINOPHEN
     Indication: Tooth infection
     Route: 048
     Dates: start: 20231231, end: 20240130
  18. CODEINE [Concomitant]
     Active Substance: CODEINE
     Indication: Tooth infection
     Route: 048
     Dates: start: 20231230, end: 20240112

REACTIONS (1)
  - Disease progression [Fatal]

NARRATIVE: CASE EVENT DATE: 20240102
